FAERS Safety Report 5062536-2 (Version None)
Quarter: 2006Q3

REPORT INFORMATION
  Report Type: 
  Country: None (occurrence: None)
  Receive Date: 20060726
  Receipt Date: 20060714
  Transmission Date: 20061208
  Serious: Yes (Death, Other)
  Sender: FDA-Public Use
  Company Number: JP-BRISTOL-MYERS SQUIBB COMPANY-13451935

PATIENT
  Age: 74 Year
  Sex: Male

DRUGS (5)
  1. ENDOXAN [Suspect]
     Indication: MYCOSIS FUNGOIDES
  2. ETOPOSIDE [Suspect]
     Indication: MYCOSIS FUNGOIDES
     Route: 048
     Dates: start: 20000101, end: 20040301
  3. THERARUBICIN [Suspect]
     Indication: MYCOSIS FUNGOIDES
  4. ONCOVIN [Concomitant]
  5. PREDNISOLONE [Concomitant]

REACTIONS (3)
  - ACUTE PROMYELOCYTIC LEUKAEMIA [None]
  - CEREBRAL HAEMORRHAGE [None]
  - TREATMENT RELATED SECONDARY MALIGNANCY [None]
